FAERS Safety Report 20721992 (Version 4)
Quarter: 2022Q3

REPORT INFORMATION
  Report Type: Spontaneous
  Country: US (occurrence: US)
  Receive Date: 20220418
  Receipt Date: 20220906
  Transmission Date: 20221026
  Serious: No
  Sender: FDA-Public Use
  Company Number: US-PFIZER INC-202101114044

PATIENT
  Age: 68 Year
  Sex: Female

DRUGS (1)
  1. EUCRISA [Suspect]
     Active Substance: CRISABOROLE
     Indication: Dermatitis atopic
     Dosage: APPLY SMALL AMOUNT TO AFFECTED AREAS, DAILY
     Route: 061

REACTIONS (3)
  - Feeling abnormal [Unknown]
  - Off label use [Unknown]
  - Off label use [Unknown]
